FAERS Safety Report 5891680-2 (Version None)
Quarter: 2008Q3

REPORT INFORMATION
  Report Type: 
  Country: None (occurrence: None)
  Receive Date: 20080922
  Receipt Date: 20080909
  Transmission Date: 20090109
  Serious: No
  Sender: FDA-Public Use
  Company Number: FR-ELI_LILLY_AND_COMPANY-FR200809002747

PATIENT
  Sex: Male

DRUGS (2)
  1. ZYPREXA [Suspect]
     Route: 048
  2. DEPAKOTE [Concomitant]
     Route: 048

REACTIONS (1)
  - LEUKOPENIA [None]
